FAERS Safety Report 5055294-9 (Version None)
Quarter: 2006Q3

REPORT INFORMATION
  Report Type: 
  Country: None (occurrence: None)
  Receive Date: 20060719
  Receipt Date: 20060328
  Transmission Date: 20061208
  Serious: No
  Sender: FDA-Public Use
  Company Number: US-AMGEN-US174081

PATIENT
  Sex: Male
  Weight: 62 kg

DRUGS (14)
  1. EPOGEN [Suspect]
     Indication: DIALYSIS
     Route: 042
     Dates: start: 20001201, end: 20060301
  2. MEDICINALPRODUCT NOT SPECIFIED BY SENDER [Concomitant]
     Route: 065
     Dates: end: 20051101
  3. MEDICINALPRODUCT NOT SPECIFIED BY SENDER [Concomitant]
     Route: 048
  4. MEDICINALPRODUCT NOT SPECIFIED BY SENDER [Concomitant]
     Route: 065
  5. MEDICINALPRODUCT NOT SPECIFIED BY SENDER [Concomitant]
     Route: 065
  6. MEDICINALPRODUCT NOT SPECIFIED BY SENDER [Concomitant]
     Route: 065
  7. MEDICINALPRODUCT NOT SPECIFIED BY SENDER [Concomitant]
     Route: 065
  8. MEDICINALPRODUCT NOT SPECIFIED BY SENDER [Concomitant]
     Route: 065
  9. MEDICINALPRODUCT NOT SPECIFIED BY SENDER [Concomitant]
     Route: 065
  10. MEDICINALPRODUCT NOT SPECIFIED BY SENDER [Concomitant]
     Route: 065
  11. MEDICINALPRODUCT NOT SPECIFIED BY SENDER [Concomitant]
     Route: 065
  12. MEDICINALPRODUCT NOT SPECIFIED BY SENDER [Concomitant]
     Route: 065
  13. MEDICINALPRODUCT NOT SPECIFIED BY SENDER [Concomitant]
     Route: 065
  14. NEUPOGEN [Concomitant]
     Route: 065

REACTIONS (3)
  - CYTOMEGALOVIRUS ANTIBODY POSITIVE [None]
  - HAEMOLYSIS [None]
  - THERAPEUTIC RESPONSE DECREASED [None]
